FAERS Safety Report 5713847-6 (Version None)
Quarter: 2008Q2

REPORT INFORMATION
  Report Type: 
  Country: None (occurrence: None)
  Receive Date: 20080421
  Receipt Date: 20080408
  Transmission Date: 20081010
  Serious: Yes (Hospitalization)
  Sender: FDA-Public Use
  Company Number: B0517009A

PATIENT
  Age: 81 Year
  Sex: Female

DRUGS (4)
  1. CEFTAZIDIME SODIUM [Suspect]
     Indication: ABSCESS
  2. VANCOMYCIN [Suspect]
     Indication: ABSCESS
  3. PIPERACILLIN SODIUM [Concomitant]
  4. TAZOBACTAM SODIUM [Concomitant]

REACTIONS (3)
  - DRUG RASH WITH EOSINOPHILIA AND SYSTEMIC SYMPTOMS [None]
  - DYSPNOEA [None]
  - NO THERAPEUTIC RESPONSE [None]
